FAERS Safety Report 9219035 (Version 1)
Quarter: 2013Q2

REPORT INFORMATION
  Report Type: Spontaneous
  Country: DE (occurrence: DE)
  Receive Date: 20130409
  Receipt Date: 20130409
  Transmission Date: 20140414
  Serious: Yes (Other)
  Sender: FDA-Public Use
  Company Number: PHHY2013DE032888

PATIENT
  Age: 78 Year
  Sex: Male

DRUGS (2)
  1. EXELON PATCH [Suspect]
     Dosage: 4.6  MG/24 HOURS
     Route: 062
     Dates: start: 201206, end: 201207
  2. EXELON PATCH [Suspect]
     Dosage: 9.5 MG/24 HOURS
     Route: 062
     Dates: start: 201207

REACTIONS (9)
  - Suicidal ideation [Not Recovered/Not Resolved]
  - Dementia [Not Recovered/Not Resolved]
  - Cognitive disorder [Not Recovered/Not Resolved]
  - General physical health deterioration [Not Recovered/Not Resolved]
  - Gait disturbance [Not Recovered/Not Resolved]
  - Balance disorder [Not Recovered/Not Resolved]
  - Fall [Not Recovered/Not Resolved]
  - Arrhythmia [Not Recovered/Not Resolved]
  - Aggression [Not Recovered/Not Resolved]
